FAERS Safety Report 7604162-4 (Version None)
Quarter: 2011Q3

REPORT INFORMATION
  Report Type: 
  Country: None (occurrence: None)
  Receive Date: 20110712
  Receipt Date: 20101129
  Transmission Date: 20111222
  Serious: No
  Sender: FDA-Public Use
  Company Number: US-BRISTOL-MYERS SQUIBB COMPANY-15418387

PATIENT
  Age: 66 Year
  Sex: Female

DRUGS (1)
  1. TOBRAMYCIN SULFATE INJECTION [Suspect]
     Route: 042

REACTIONS (2)
  - TOXICITY TO VARIOUS AGENTS [None]
  - HYPOACUSIS [None]
